FAERS Safety Report 9550746 (Version 2)
Quarter: 2014Q3

REPORT INFORMATION
  Report Type: Report from Study
  Country: US (occurrence: US)
  Receive Date: 20130924
  Receipt Date: 20140820
  Transmission Date: 20150326
  Serious: Yes (Other)
  Sender: FDA-Public Use
  Company Number: US-SANOFI-AVENTIS-2013SA023045

PATIENT
  Age: 51 Year
  Sex: Male
  Weight: 70 kg

DRUGS (12)
  1. AUBAGIO [Suspect]
     Active Substance: TERIFLUNOMIDE
     Indication: MULTIPLE SCLEROSIS
     Route: 048
     Dates: end: 20130608
  2. OXYCODONE [Concomitant]
     Active Substance: OXYCODONE
  3. ZYRTEC-D /USA/ [Concomitant]
  4. TYSABRI [Concomitant]
     Active Substance: NATALIZUMAB
  5. AUBAGIO [Suspect]
     Active Substance: TERIFLUNOMIDE
     Indication: MULTIPLE SCLEROSIS
     Route: 048
     Dates: start: 20130212, end: 20130326
  6. AUBAGIO [Suspect]
     Active Substance: TERIFLUNOMIDE
     Indication: MULTIPLE SCLEROSIS
     Route: 048
     Dates: end: 20130608
  7. DONEPEZIL [Concomitant]
     Active Substance: DONEPEZIL
  8. LOSARTAN [Concomitant]
     Active Substance: LOSARTAN
  9. GABAPENTIN. [Concomitant]
     Active Substance: GABAPENTIN
     Indication: MULTIPLE SCLEROSIS
  10. CENTRUM SILVER [Concomitant]
     Active Substance: VITAMINS
  11. CHLORZOXAZONE. [Concomitant]
     Active Substance: CHLORZOXAZONE
     Indication: MUSCLE RELAXANT THERAPY
  12. HYZAAR [Concomitant]
     Active Substance: HYDROCHLOROTHIAZIDE\LOSARTAN POTASSIUM

REACTIONS (14)
  - Pain [Unknown]
  - Condition aggravated [Unknown]
  - Ocular hyperaemia [Not Recovered/Not Resolved]
  - Drug hypersensitivity [Unknown]
  - Back pain [Not Recovered/Not Resolved]
  - Sinus disorder [Unknown]
  - Dysgraphia [Unknown]
  - Diarrhoea [Unknown]
  - Rash [Recovered/Resolved]
  - Renal stone removal [Unknown]
  - Hearing impaired [Unknown]
  - Pain in extremity [Not Recovered/Not Resolved]
  - Eye swelling [Unknown]
  - Pruritus [Recovered/Resolved]

NARRATIVE: CASE EVENT DATE: 2013
